FAERS Safety Report 7031622-X (Version None)
Quarter: 2010Q4

REPORT INFORMATION
  Report Type: 
  Country: None (occurrence: None)
  Receive Date: 20101006
  Receipt Date: 20101006
  Transmission Date: 20110411
  Serious: Yes (Other)
  Sender: FDA-Public Use
  Company Number: None

PATIENT
  Age: 24 Year
  Sex: Female

DRUGS (1)
  1. CREST PRO HEALTH MULTI PROTECTION MOUTHWASH [Suspect]
     Indication: DENTAL DISORDER PROPHYLAXIS
     Dates: start: 20100830, end: 20100830

REACTIONS (4)
  - AGEUSIA [None]
  - HYPOAESTHESIA [None]
  - PARAESTHESIA [None]
  - PRODUCT QUALITY ISSUE [None]
